FAERS Safety Report 5523051-2 (Version None)
Quarter: 2007Q4

REPORT INFORMATION
  Report Type: 
  Country: None (occurrence: None)
  Receive Date: 20071119
  Receipt Date: 20071119
  Transmission Date: 20080405
  Serious: Yes (Hospitalization)
  Sender: FDA-Public Use
  Company Number: None

PATIENT
  Age: 54 Year
  Sex: Male

DRUGS (1)
  1. CLINDAMYCIN HCL [Suspect]
     Indication: SURGERY
     Dosage: 300MG PO
     Route: 048
     Dates: start: 20071029, end: 20071029

REACTIONS (4)
  - ANGIOEDEMA [None]
  - PRURITUS [None]
  - RASH [None]
  - URTICARIA [None]
